FAERS Safety Report 5533898-4 (Version None)
Quarter: 2007Q4

REPORT INFORMATION
  Report Type: 
  Country: None (occurrence: None)
  Receive Date: 20071129
  Receipt Date: 20071120
  Transmission Date: 20080405
  Serious: Yes (Hospitalization)
  Sender: FDA-Public Use
  Company Number: 2007-03739

PATIENT
  Age: 33 Year
  Sex: Male
  Weight: 73 kg

DRUGS (7)
  1. VELCADE [Suspect]
     Indication: MULTIPLE MYELOMA
     Dosage: 1.30 MG/M2, INTRAVENOUS
     Route: 042
     Dates: start: 20061225, end: 20071102
  2. DOXORUBICIN HCL [Suspect]
     Indication: MULTIPLE MYELOMA
  3. DEXAMETHASONE TAB [Suspect]
     Indication: MULTIPLE MYELOMA
  4. OMEPRAZOLE [Concomitant]
  5. PREDNISONE [Concomitant]
  6. TACROLIMUS [Concomitant]
  7. ZOMETA [Concomitant]

REACTIONS (5)
  - DEHYDRATION [None]
  - FLUID INTAKE REDUCED [None]
  - INFECTION [None]
  - RENAL FAILURE [None]
  - TACHYCARDIA [None]
